FAERS Safety Report 7761236-5 (Version None)
Quarter: 2011Q3

REPORT INFORMATION
  Report Type: 
  Country: None (occurrence: None)
  Receive Date: 20110920
  Receipt Date: 20110908
  Transmission Date: 20111222
  Serious: Yes (Hospitalization)
  Sender: FDA-Public Use
  Company Number: IT-JNJFOC-20100906575

PATIENT
  Sex: Male
  Weight: 47.7 kg

DRUGS (7)
  1. ANTIHISTAMINE [Concomitant]
  2. REMICADE [Suspect]
     Indication: CROHN'S DISEASE
     Route: 042
     Dates: start: 20100104
  3. BUDESONIDE [Concomitant]
  4. AZATHIOPRINE [Concomitant]
  5. REMICADE [Suspect]
     Route: 042
     Dates: start: 20100803
  6. MESALAMINE [Concomitant]
     Route: 048
  7. LANSOPRAZOLE [Concomitant]

REACTIONS (1)
  - CROHN'S DISEASE [None]
